FAERS Safety Report 13197168 (Version 2)
Quarter: 2017Q1

REPORT INFORMATION
  Report Type: Spontaneous
  Country: US (occurrence: US)
  Receive Date: 20170208
  Receipt Date: 20170228
  Transmission Date: 20170428
  Serious: Yes (Other)
  Sender: FDA-Public Use
  Company Number: US-ALLERGAN-1000087393

PATIENT
  Age: 54 Year
  Sex: Female
  Weight: 57.27 kg

DRUGS (3)
  1. SAVELLA [Suspect]
     Active Substance: MILNACIPRAN HYDROCHLORIDE
     Indication: FIBROMYALGIA
     Dosage: 50 MG, QD
     Route: 048
     Dates: start: 201607, end: 20160831
  2. SAVELLA [Suspect]
     Active Substance: MILNACIPRAN HYDROCHLORIDE
     Indication: DEPRESSION
  3. BACLOFEN. [Concomitant]
     Active Substance: BACLOFEN
     Indication: PRODUCT USED FOR UNKNOWN INDICATION
     Dosage: UNK

REACTIONS (6)
  - Palpitations [Recovered/Resolved]
  - Arrhythmia [Recovered/Resolved]
  - Off label use [Unknown]
  - Headache [Recovered/Resolved]
  - Off label use [Unknown]
  - Insomnia [Not Recovered/Not Resolved]

NARRATIVE: CASE EVENT DATE: 201607
